FAERS Safety Report 8112737-1 (Version None)
Quarter: 2011Q4

REPORT INFORMATION
  Report Type: 
  Country: None (occurrence: None)
  Receive Date: 20111227
  Receipt Date: 20111110
  Transmission Date: 20120403
  Serious: Yes (Hospitalization)
  Sender: FDA-Public Use
  Company Number: PHEH2011US009252

PATIENT
  Age: 36 Year
  Sex: Female

DRUGS (3)
  1. BACLOFEN [Concomitant]
  2. ZARONTIN [Concomitant]
  3. GILENYA [Suspect]
     Indication: RELAPSING-REMITTING MULTIPLE SCLEROSIS
     Dosage: 0.5 MG, QD, ORAL
     Route: 048
     Dates: start: 20110901, end: 20111103

REACTIONS (1)
  - PNEUMONIA [None]
